FAERS Safety Report 8132153-6 (Version None)
Quarter: 2012Q1

REPORT INFORMATION
  Report Type: 
  Country: None (occurrence: None)
  Receive Date: 20120213
  Receipt Date: 20120209
  Transmission Date: 20120608
  Serious: Yes (Other)
  Sender: FDA-Public Use
  Company Number: IT-PFIZER INC-2012031365

PATIENT
  Age: 84 Year
  Sex: Male

DRUGS (4)
  1. LANSOPRAZOLE [Concomitant]
     Dosage: UNK
  2. NORVASC [Suspect]
     Dosage: 5 MG, 1X/DAY
     Route: 048
     Dates: start: 20101212, end: 20111211
  3. VALSARTAN  AND HYDROCHLOROTHIAZIDE [Suspect]
     Dosage: ^160MG^, 1X/DAY
     Route: 048
     Dates: start: 20101212, end: 20111211
  4. XYZAL [Concomitant]
     Dosage: UNK

REACTIONS (2)
  - SYNCOPE [None]
  - HYPONATRAEMIA [None]
